FAERS Safety Report 16354884 (Version 1)
Quarter: 2019Q2

REPORT INFORMATION
  Report Type: Spontaneous
  Country: HK (occurrence: HK)
  Receive Date: 20190524
  Receipt Date: 20190524
  Transmission Date: 20190711
  Serious: Yes (Other)
  Sender: FDA-Public Use
  Company Number: PHHY2019HK116121

PATIENT
  Age: 35 Year
  Sex: Female

DRUGS (4)
  1. METOCLOPRAMIDE. [Suspect]
     Active Substance: METOCLOPRAMIDE
     Indication: HYPEREMESIS GRAVIDARUM
     Dosage: UNK
     Route: 042
  2. ZOFRAN [Suspect]
     Active Substance: ONDANSETRON HYDROCHLORIDE
     Indication: HYPEREMESIS GRAVIDARUM
     Dosage: 8 MG, Q8H
     Route: 042
  3. ZOFRAN [Suspect]
     Active Substance: ONDANSETRON HYDROCHLORIDE
     Dosage: UNK
     Route: 048
  4. PROMETHAZINE [Suspect]
     Active Substance: PROMETHAZINE\PROMETHAZINE HYDROCHLORIDE
     Indication: HYPEREMESIS GRAVIDARUM
     Dosage: UNK
     Route: 065

REACTIONS (12)
  - Hypokalaemia [Unknown]
  - Drug ineffective [Unknown]
  - Dehydration [Unknown]
  - Weight decreased [Unknown]
  - Product use in unapproved indication [Unknown]
  - Food intolerance [Unknown]
  - Preterm premature rupture of membranes [Unknown]
  - Premature delivery [Unknown]
  - Haematemesis [Unknown]
  - Gestational diabetes [Unknown]
  - Ketonuria [Unknown]
  - Maternal exposure during pregnancy [Unknown]
